FAERS Safety Report 4897953-4 (Version None)
Quarter: 2006Q1

REPORT INFORMATION
  Report Type: 
  Country: None (occurrence: None)
  Receive Date: 20060130
  Receipt Date: 20060119
  Transmission Date: 20060701
  Serious: Yes (Disabling)
  Sender: FDA-Public Use
  Company Number: 200610060BNE

PATIENT
  Age: 53 Year
  Sex: Female

DRUGS (1)
  1. CIPROFLOXACIN HCL [Suspect]
     Indication: KIDNEY INFECTION
     Dosage: INTRAVENOUS
     Route: 042

REACTIONS (2)
  - ARTHRITIS REACTIVE [None]
  - TENOSYNOVITIS [None]
